FAERS Safety Report 6780346-2 (Version None)
Quarter: 2010Q2

REPORT INFORMATION
  Report Type: 
  Country: None (occurrence: None)
  Receive Date: 20100618
  Receipt Date: 20100609
  Transmission Date: 20101027
  Serious: Yes (Other)
  Sender: FDA-Public Use
  Company Number: FR-ALLERGAN-1007646US

PATIENT
  Age: 62 Year
  Sex: Female

DRUGS (14)
  1. BOTOX [Suspect]
     Indication: MUSCLE SPASTICITY
     Dosage: 100 UNITS, SINGLE
     Route: 030
     Dates: start: 20100407, end: 20100407
  2. LIORESAL [Suspect]
     Indication: MUSCLE SPASTICITY
     Dosage: 50 MG, QD
     Route: 048
     Dates: start: 20090211, end: 20090426
  3. DEROXAT [Concomitant]
     Indication: DEPRESSION
     Dosage: 20 MG, QD
     Route: 048
  4. DURAGESIC-100 [Concomitant]
     Indication: ARTHRALGIA
     Dosage: 1 PATCH Q72H
     Route: 062
     Dates: start: 20100310
  5. COVERSYL [Concomitant]
     Indication: HYPERTENSION
     Dosage: 4 MG, QD
  6. COVERSYL [Concomitant]
     Indication: ISCHAEMIC STROKE
  7. MYOLASTAN [Concomitant]
     Indication: MUSCLE CONTRACTIONS INVOLUNTARY
     Dosage: 0.5 MG, QD
     Dates: start: 20090317, end: 20090414
  8. ZOLPIDEM [Concomitant]
     Indication: INSOMNIA
     Dosage: 1 CAPSULE DAILY
     Dates: start: 20090225, end: 20090414
  9. XATRAL [Concomitant]
     Indication: BENIGN PROSTATIC HYPERPLASIA
     Dosage: 10 MG, QD
     Dates: start: 20090328
  10. XATRAL [Concomitant]
     Indication: DYSURIA
  11. SINTROM [Concomitant]
     Indication: PULMONARY EMBOLISM
     Dosage: 0.5 CAPS ALTERNATE WITH 0.75 DAILY
     Dates: start: 20100414
  12. TAHOR [Concomitant]
     Indication: DYSLIPIDAEMIA
     Dosage: 40 MG, QD
  13. TAHOR [Concomitant]
     Indication: ISCHAEMIC STROKE
  14. LOVENOX [Concomitant]
     Indication: DRUG USE FOR UNKNOWN INDICATION
     Dosage: 0.5 ML Q12H
     Route: 058
     Dates: start: 20090405, end: 20090414

REACTIONS (1)
  - EPILEPSY [None]
